FAERS Safety Report 18991309 (Version 1)
Quarter: 2021Q1

REPORT INFORMATION
  Report Type: Report from Study
  Country: US (occurrence: US)
  Receive Date: 20210310
  Receipt Date: 20210310
  Transmission Date: 20210420
  Serious: Yes (Other)
  Sender: FDA-Public Use
  Company Number: US-ASTELLAS-2021US008404

PATIENT
  Sex: Male

DRUGS (1)
  1. ENZALUTAMIDE [Suspect]
     Active Substance: ENZALUTAMIDE
     Indication: HORMONE-REFRACTORY PROSTATE CANCER
     Route: 048
     Dates: start: 20201228

REACTIONS (9)
  - Hallucination [Recovering/Resolving]
  - Confusional state [Unknown]
  - Incoherent [Unknown]
  - Renal failure [Unknown]
  - Amnesia [Recovering/Resolving]
  - Fatigue [Unknown]
  - Cognitive disorder [Unknown]
  - Condition aggravated [Recovering/Resolving]
  - Asthenia [Recovering/Resolving]
